FAERS Safety Report 5405011-5 (Version None)
Quarter: 2007Q3

REPORT INFORMATION
  Report Type: 
  Country: None (occurrence: None)
  Receive Date: 20070803
  Receipt Date: 20070727
  Transmission Date: 20080115
  Serious: Yes (Other)
  Sender: FDA-Public Use
  Company Number: JP-AVENTIS-200711816JP

PATIENT
  Age: 17 Year
  Sex: Female

DRUGS (3)
  1. ALLEGRA [Suspect]
     Indication: URTICARIA
     Dosage: DOSE: 3 TABLETS
     Route: 048
     Dates: start: 20070627, end: 20070705
  2. TALION                             /01587401/ [Concomitant]
     Indication: URTICARIA
     Dates: start: 20070525
  3. CELESTAMINE                        /00008501/ [Concomitant]
     Indication: URTICARIA
     Dates: start: 20070525

REACTIONS (2)
  - HYPOTENSION [None]
  - SYNCOPE [None]
